FAERS Safety Report 7085973-3 (Version None)
Quarter: 2010Q4

REPORT INFORMATION
  Report Type: 
  Country: None (occurrence: None)
  Receive Date: 20101105
  Receipt Date: 20101028
  Transmission Date: 20110411
  Serious: Yes (Hospitalization)
  Sender: FDA-Public Use
  Company Number: US-JNJFOC-20101100731

PATIENT
  Sex: Male
  Weight: 35.56 kg

DRUGS (4)
  1. REMICADE [Suspect]
     Indication: CROHN'S DISEASE
     Route: 042
  2. METHOTREXATE [Concomitant]
  3. PROTONIX [Concomitant]
  4. PREDNISONE [Concomitant]

REACTIONS (1)
  - ILEAL STENOSIS [None]
